FAERS Safety Report 8879744 (Version 2)
Quarter: 2012Q4

REPORT INFORMATION
  Report Type: 
  Country: US (occurrence: US)
  Receive Date: 20121031
  Receipt Date: 20121220
  Transmission Date: 20130627
  Serious: Yes (Hospitalization)
  Sender: FDA-Public Use
  Company Number: US-GILEAD-2012-0062070

PATIENT
  Sex: Female

DRUGS (2)
  1. LETAIRIS [Suspect]
     Indication: PORTOPULMONARY HYPERTENSION
     Dosage: 5 mg, UNK
     Route: 048
     Dates: start: 20110118
  2. ADCIRCA [Concomitant]

REACTIONS (3)
  - Blood sodium decreased [Unknown]
  - Ammonia increased [Unknown]
  - Fluid retention [Not Recovered/Not Resolved]
